FAERS Safety Report 5299727-1 (Version None)
Quarter: 2007Q2

REPORT INFORMATION
  Report Type: 
  Country: None (occurrence: None)
  Receive Date: 20070410
  Receipt Date: 20070327
  Transmission Date: 20071010
  Serious: Yes (Death, Life-Threatening, Hospitalization)
  Sender: FDA-Public Use
  Company Number: POMP-10998

PATIENT
  Age: 27 Month
  Sex: Female

DRUGS (9)
  1. MYOZYME [Suspect]
     Indication: GLYCOGEN STORAGE DISEASE TYPE II
     Dosage: 20 MG/KG Q2WKS IV
     Route: 042
     Dates: start: 20060101, end: 20070228
  2. MYOZYME [Suspect]
     Indication: GLYCOGEN STORAGE DISEASE TYPE II
     Dosage: 20 MG/KG Q2WKS IV
     Route: 042
     Dates: start: 20060419, end: 20060101
  3. MEROPENIN [Concomitant]
  4. FUROSEMIDE [Concomitant]
  5. AMIKACIN [Concomitant]
  6. DOPAMINE HCL [Concomitant]
  7. MILRINONE [Concomitant]
  8. POTASSIUM CHLORIDE [Concomitant]
  9. CALCIUM CHLORIDE [Concomitant]

REACTIONS (6)
  - CARDIAC FAILURE [None]
  - CULTURE POSITIVE [None]
  - PNEUMONIA [None]
  - PSEUDOMONAS INFECTION [None]
  - RESPIRATORY DISTRESS [None]
  - SEPSIS [None]
